FAERS Safety Report 6132665-0 (Version None)
Quarter: 2009Q1

REPORT INFORMATION
  Report Type: 
  Country: None (occurrence: None)
  Receive Date: 20090324
  Receipt Date: 20090311
  Transmission Date: 20090719
  Serious: Yes (Death, Life-Threatening, Hospitalization)
  Sender: FDA-Public Use
  Company Number: CLOF-10466

PATIENT
  Age: 68 Year
  Sex: Male

DRUGS (14)
  1. CLOFARABINE AND/OR ARA-C (CODE NOT BROKEN) SOLUTION FOR INFUSION [Suspect]
     Indication: ACUTE MYELOID LEUKAEMIA
     Dates: start: 20070301, end: 20070304
  2. CYTARABINE [Suspect]
     Indication: ACUTE MYELOID LEUKAEMIA
     Dosage: 2020 MG, QDX5, INTRAVENOUS
     Route: 042
     Dates: start: 20070301, end: 20070304
  3. AMBISOME [Concomitant]
  4. ACYCLOVIR [Concomitant]
  5. CITALOPRAM HYDROBROMIDE [Concomitant]
  6. FAMOTIDINE [Concomitant]
  7. LISINOPRIL [Concomitant]
  8. MEGESTROL ACETATE [Concomitant]
  9. METOCLOPRAMIDE (METOCLOPRAMIDE HYDROCHLORIDE) [Concomitant]
  10. SPIRONOLACTONE [Concomitant]
  11. VORICONAZOLE (VORICONAZOLE) [Concomitant]
  12. LEVOFLOXACIN [Concomitant]
  13. POTASSIUM CHLORIDE [Concomitant]
  14. PROTONIX [Concomitant]

REACTIONS (18)
  - ASCITES [None]
  - BACTERIAL SEPSIS [None]
  - BLOOD CULTURE POSITIVE [None]
  - BONE MARROW FAILURE [None]
  - COAGULOPATHY [None]
  - CONFUSIONAL STATE [None]
  - CONTINUOUS HAEMODIAFILTRATION [None]
  - GENERALISED OEDEMA [None]
  - HAEMODIALYSIS [None]
  - MENTAL STATUS CHANGES [None]
  - MUCOSAL INFLAMMATION [None]
  - RENAL FAILURE ACUTE [None]
  - RENAL TUBULAR NECROSIS [None]
  - RESPIRATORY FAILURE [None]
  - SEPTIC SHOCK [None]
  - STAPHYLOCOCCAL INFECTION [None]
  - TUMOUR LYSIS SYNDROME [None]
  - VENOOCCLUSIVE LIVER DISEASE [None]
